FAERS Safety Report 20297615 (Version 1)
Quarter: 2022Q1

REPORT INFORMATION
  Report Type: Spontaneous
  Country: US (occurrence: None)
  Receive Date: 20220105
  Receipt Date: 20220105
  Transmission Date: 20220424
  Serious: No
  Sender: FDA-Public Use
  Company Number: US-ROCHE-2750694

PATIENT
  Age: 1 Year
  Sex: Male
  Weight: 11.6 kg

DRUGS (2)
  1. HEMLIBRA [Suspect]
     Active Substance: EMICIZUMAB-KXWH
     Indication: Factor VIII deficiency
     Route: 058
     Dates: start: 202003
  2. AMICAR [Concomitant]
     Active Substance: AMINOCAPROIC ACID
     Indication: Epistaxis
     Dosage: AS NEEDED FOR NOSE BLEEDS
     Dates: start: 202003

REACTIONS (2)
  - Accidental exposure to product [Unknown]
  - No adverse event [Unknown]

NARRATIVE: CASE EVENT DATE: 20210113
